FAERS Safety Report 9416096 (Version 2)
Quarter: 2013Q3

REPORT INFORMATION
  Report Type: Spontaneous
  Country: US (occurrence: None)
  Receive Date: 20130717
  Receipt Date: 20130819
  Transmission Date: 20140515
  Serious: Yes (Hospitalization, Other)
  Sender: FDA-Public Use
  Company Number: 2013P1011384

PATIENT
  Age: 54 Year
  Sex: Female

DRUGS (10)
  1. COLLAGENASE SANTYL [Suspect]
     Indication: WOUND
     Dates: start: 20130319, end: 20130430
  2. COLLAGENASE SANTYL [Suspect]
     Indication: INJURY
     Dates: start: 20130319, end: 20130430
  3. PREDNISONE [Suspect]
     Route: 048
  4. PREZISTA (DARUNAVIR) [Concomitant]
  5. NOVIR (RITONAVIR) [Concomitant]
  6. ISENTRESS (RALTEGRAVIR) [Concomitant]
  7. INTELENCE (ETRAVIRINE) [Concomitant]
  8. PRILOSEC [Concomitant]
  9. ZOFRAN (ONDANSETRON) [Concomitant]
  10. PERCOCET (OXYCODONE-ACETAMINOPHEN) [Concomitant]

REACTIONS (4)
  - Wound complication [None]
  - Postoperative wound infection [None]
  - Cellulitis [None]
  - Abscess [None]
